FAERS Safety Report 8439112-4 (Version None)
Quarter: 2012Q2

REPORT INFORMATION
  Report Type: 
  Country: None (occurrence: None)
  Receive Date: 20120615
  Receipt Date: 20120607
  Transmission Date: 20120825
  Serious: Yes (Other)
  Sender: FDA-Public Use
  Company Number: US-UCBSA-059231

PATIENT
  Sex: Female
  Weight: 77.15 kg

DRUGS (1)
  1. CIMZIA [Suspect]
     Indication: CROHN'S DISEASE
     Route: 058
     Dates: start: 20110419, end: 20110801

REACTIONS (4)
  - AGGRESSION [None]
  - ILLOGICAL THINKING [None]
  - AMNESIA [None]
  - THINKING ABNORMAL [None]
